FAERS Safety Report 5751537-4 (Version None)
Quarter: 2008Q2

REPORT INFORMATION
  Report Type: 
  Country: None (occurrence: None)
  Receive Date: 20080527
  Receipt Date: 20080510
  Transmission Date: 20081010
  Serious: Yes (Other)
  Sender: FDA-Public Use
  Company Number: CHPA2008US08090

PATIENT
  Age: 19 Year
  Sex: Female

DRUGS (1)
  1. COMTREX COLD + COUGH DAY (PARACETAMOL, DEXTROMETHORPHAN, PHENYLEPHRINE [Suspect]
     Indication: PHARYNGOLARYNGEAL PAIN
     Dosage: 2 DF, QD, ORAL
     Route: 048
     Dates: start: 20080509

REACTIONS (3)
  - DRUG EXPOSURE DURING PREGNANCY [None]
  - HAEMORRHAGE [None]
  - PREGNANCY [None]
